FAERS Safety Report 5376048-X (Version None)
Quarter: 2007Q3

REPORT INFORMATION
  Report Type: 
  Country: None (occurrence: None)
  Receive Date: 20070702
  Receipt Date: 20070619
  Transmission Date: 20080115
  Serious: Yes (Other)
  Sender: FDA-Public Use
  Company Number: FR-AMGEN-UK230800

PATIENT

DRUGS (2)
  1. ARANESP [Suspect]
  2. VANCOMYCIN HCL [Concomitant]

REACTIONS (1)
  - DRUG INEFFECTIVE [None]
